FAERS Safety Report 7319410-8 (Version None)
Quarter: 2011Q1

REPORT INFORMATION
  Report Type: 
  Country: None (occurrence: None)
  Receive Date: 20110228
  Receipt Date: 20100310
  Transmission Date: 20110831
  Serious: Yes (Other)
  Sender: FDA-Public Use
  Company Number: A0849488A

PATIENT
  Age: 39 Year
  Sex: Female

DRUGS (3)
  1. LAMICTAL [Suspect]
     Dosage: 50MG PER DAY
     Route: 048
     Dates: start: 20091101
  2. LEXAPRO [Concomitant]
  3. LAMICTAL [Suspect]
     Dosage: 10MG PER DAY
     Route: 048
     Dates: start: 20100101

REACTIONS (4)
  - APHASIA [None]
  - FATIGUE [None]
  - VISION BLURRED [None]
  - DIZZINESS [None]
